FAERS Safety Report 25115761 (Version 2)
Quarter: 2025Q2

REPORT INFORMATION
  Report Type: Spontaneous
  Country: JP (occurrence: JP)
  Receive Date: 20250325
  Receipt Date: 20250527
  Transmission Date: 20250717
  Serious: Yes (Life-Threatening, Hospitalization, Other)
  Sender: GLAXOSMITHKLINE
  Company Number: JP-GSKJP-JP2024JPN117559AA

PATIENT

DRUGS (16)
  1. DAPRODUSTAT [Suspect]
     Active Substance: DAPRODUSTAT
     Indication: Nephrogenic anaemia
     Dosage: 4 MG, 1D
     Route: 048
     Dates: start: 20240604
  2. DAPRODUSTAT [Suspect]
     Active Substance: DAPRODUSTAT
     Dosage: 6 MG
     Route: 048
     Dates: start: 20240702
  3. PREDNISOLONE [Suspect]
     Active Substance: PREDNISOLONE
     Indication: Rheumatoid arthritis
     Dosage: 1 MG, 1D
     Route: 048
  4. MIRCERA [Concomitant]
     Active Substance: METHOXY POLYETHYLENE GLYCOL-EPOETIN BETA
     Indication: Nephrogenic anaemia
     Dosage: 50 ?G, QD
  5. FUROSEMIDE [Concomitant]
     Active Substance: FUROSEMIDE
     Indication: Chronic kidney disease
     Dosage: 20 MG, 1D
     Route: 048
  6. AMLODIPINE [Concomitant]
     Active Substance: AMLODIPINE BESYLATE
     Indication: Hypertension
     Dosage: 5 MG, 1D
     Route: 048
  7. NEXIUM [Concomitant]
     Active Substance: ESOMEPRAZOLE MAGNESIUM
     Indication: Gastrooesophageal reflux disease
     Dosage: 10 MG, 1D
     Route: 048
  8. ICOSAPENT ETHYL [Concomitant]
     Active Substance: ICOSAPENT ETHYL
     Indication: Dyslipidaemia
     Dosage: 900 MG, 1D
     Route: 048
  9. FEBUXOSTAT [Concomitant]
     Active Substance: FEBUXOSTAT
     Indication: Hyperuricaemia
     Dosage: 10 MG, 1D
     Route: 048
  10. AZULFIDINE EN-TABS [Concomitant]
     Active Substance: SULFASALAZINE
     Indication: Rheumatoid arthritis
     Dosage: 500 MG, 1D
     Route: 048
  11. LOSARTAN POTASSIUM [Concomitant]
     Active Substance: LOSARTAN POTASSIUM
     Indication: Hypertension
     Dosage: 50 MG, 1D
     Route: 048
  12. ALFACALCIDOL [Concomitant]
     Active Substance: ALFACALCIDOL
     Indication: Hyperparathyroidism
     Dosage: 0.25 MG, 1D
     Route: 048
     Dates: start: 20231010
  13. EVOCALCET [Concomitant]
     Active Substance: EVOCALCET
     Indication: Hyperparathyroidism
     Dosage: 1 MG, 1D
     Route: 048
     Dates: start: 20240109, end: 20241202
  14. CRESTOR [Concomitant]
     Active Substance: ROSUVASTATIN CALCIUM
     Indication: Dyslipidaemia
     Dosage: 2.5 MG, 1D
     Route: 048
  15. CILNIDIPINE [Concomitant]
     Active Substance: CILNIDIPINE
     Indication: Hypertension
     Dosage: 10 MG, 1D
     Route: 048
  16. CALTAN [Concomitant]
     Active Substance: CALCIUM CARBONATE
     Indication: Hyperphosphataemia
     Dosage: 1000 MG, BID
     Route: 048

REACTIONS (6)
  - Pulmonary embolism [Recovered/Resolved]
  - Deep vein thrombosis [Recovered/Resolved]
  - Tricuspid valve incompetence [Unknown]
  - Dyspnoea at rest [Unknown]
  - Cardiomegaly [Unknown]
  - Palpitations [Unknown]

NARRATIVE: CASE EVENT DATE: 20240914
